FAERS Safety Report 13472990 (Version 1)
Quarter: 2017Q2

REPORT INFORMATION
  Report Type: Spontaneous
  Country: TR (occurrence: TR)
  Receive Date: 20170424
  Receipt Date: 20170424
  Transmission Date: 20170830
  Serious: Yes (Death, Hospitalization, Other)
  Sender: FDA-Public Use
  Company Number: TR-MYLANLABS-2017M1024870

PATIENT

DRUGS (3)
  1. ASPIRIN                            /00002701/ [Concomitant]
     Active Substance: ASPIRIN
     Indication: PRODUCT USED FOR UNKNOWN INDICATION
     Route: 065
  2. AMLODIPINE [Suspect]
     Active Substance: AMLODIPINE BESYLATE
     Indication: PRODUCT USED FOR UNKNOWN INDICATION
     Dosage: 140 MG
     Route: 048
  3. INSULIN [Concomitant]
     Active Substance: INSULIN NOS
     Indication: DIABETES MELLITUS
     Route: 065

REACTIONS (11)
  - Ischaemia [Fatal]
  - Loss of consciousness [Not Recovered/Not Resolved]
  - Sinus bradycardia [Fatal]
  - Myocardial depression [Not Recovered/Not Resolved]
  - Lactic acidosis [Fatal]
  - Metabolic acidosis [Fatal]
  - Overdose [Fatal]
  - Suicide attempt [Fatal]
  - Confusional state [Not Recovered/Not Resolved]
  - Cardiac arrest [Fatal]
  - Hypotension [Not Recovered/Not Resolved]
